FAERS Safety Report 9612401 (Version 2)
Quarter: 2013Q4

REPORT INFORMATION
  Report Type: Spontaneous
  Country: TR (occurrence: TR)
  Receive Date: 20131010
  Receipt Date: 20131016
  Transmission Date: 20140711
  Serious: Yes (Other)
  Sender: FDA-Public Use
  Company Number: TR-PFIZER INC-2013288128

PATIENT
  Age: 3 Year
  Sex: Male

DRUGS (4)
  1. IBUPROFEN [Suspect]
     Dosage: UNK
  2. KETOPROFEN [Suspect]
     Dosage: UNK
  3. ACETAMINOPHEN [Suspect]
     Dosage: UNK
  4. METAMIZOLE SODIUM [Suspect]
     Dosage: UNK

REACTIONS (2)
  - Angioedema [Unknown]
  - Drug hypersensitivity [Unknown]
